FAERS Safety Report 9213043 (Version 1)
Quarter: 2013Q1

REPORT INFORMATION
  Report Type: Spontaneous
  Country: US (occurrence: None)
  Receive Date: 20120820
  Receipt Date: 20120820
  Transmission Date: 20140127
  Serious: No
  Sender: FDA-Public Use
  Company Number: 1000036808

PATIENT
  Age: 34 Year
  Sex: Male

DRUGS (4)
  1. VIIBRYD (VILAZODONE) [Suspect]
     Indication: DEPRESSION
  2. LISINOPRIL (LISINOPRIL) (LISINOPRIL) [Concomitant]
  3. PROTONIX (PANTOPRAZOLE SODIUM SESQUIHYDRATE) (PANTOPRAZOLE SODIUM SESQUIHYDRATE) [Concomitant]
  4. ZOCOR (SIMVASTATIN) (SIMVASTATIN) [Concomitant]

REACTIONS (7)
  - Dyspnoea [None]
  - Pyrexia [None]
  - Fatigue [None]
  - Heart rate increased [None]
  - Abdominal pain [None]
  - Myalgia [None]
  - Dizziness [None]
